FAERS Safety Report 16284639 (Version 1)
Quarter: 2019Q2

REPORT INFORMATION
  Report Type: Spontaneous
  Country: US (occurrence: US)
  Receive Date: 20190402
  Receipt Date: 20190402
  Transmission Date: 20190711
  Serious: No
  Sender: FDA-Public Use
  Company Number: None

PATIENT
  Age: 67 Year
  Sex: Female
  Weight: 100.7 kg

DRUGS (1)
  1. SIMPONI ARIA [Suspect]
     Active Substance: GOLIMUMAB
     Indication: RHEUMATOID ARTHRITIS
     Dosage: OVER 30 MINUTES AT WEEK 0 AND WEEK 4 AS DIRECTED
     Route: 042
     Dates: start: 201810

REACTIONS (2)
  - Neoplasm malignant [None]
  - Therapy cessation [None]
